FAERS Safety Report 8645168 (Version 2)
Quarter: 2012Q4

REPORT INFORMATION
  Report Type: 
  Country: FR (occurrence: FR)
  Receive Date: 20120702
  Receipt Date: 20121012
  Transmission Date: 20130627
  Serious: Yes (Other)
  Sender: FDA-Public Use
  Company Number: PHHY2012FR055685

PATIENT
  Age: 45 None
  Sex: Female

DRUGS (10)
  1. ZOMETA [Suspect]
     Indication: METASTASES TO BONE
     Dosage: 4 mg, every 3 weeks
     Dates: start: 20090326, end: 201103
  2. AVASTIN [Concomitant]
     Dosage: UNK
     Dates: start: 200709, end: 20100429
  3. FEMARA [Concomitant]
     Dosage: UNK
     Dates: start: 200902, end: 20100429
  4. AREDIA [Concomitant]
     Dosage: 90 mg, UNK
     Dates: start: 20090305
  5. AROMASIN [Concomitant]
     Dosage: UNK
     Dates: start: 200601, end: 20100824
  6. XELODA [Concomitant]
     Dosage: 2000 mg/m2,
  7. XELODA [Concomitant]
     Dosage: 2500 mg/m2, UNK
     Dates: start: 20100719, end: 201110
  8. XELODA [Concomitant]
     Dosage: 2500 mg/m2, UNK
  9. NAVELBINE [Concomitant]
     Dosage: 60 mg/m2, UNK
     Dates: start: 20101021, end: 20101124
  10. NAVELBINE [Concomitant]
     Dosage: 80 mg/m2, UNK
     Dates: start: 20111125, end: 201204

REACTIONS (1)
  - Osteonecrosis of jaw [Recovered/Resolved with Sequelae]
